FAERS Safety Report 4509003-X (Version None)
Quarter: 2004Q4

REPORT INFORMATION
  Report Type: 
  Country: None (occurrence: None)
  Receive Date: 20041122
  Receipt Date: 20041122
  Transmission Date: 20050328
  Serious: Yes (Hospitalization)
  Sender: FDA-Public Use
  Company Number: None

PATIENT
  Age: 44 Year
  Sex: Female

DRUGS (1)
  1. BACTRIM [Suspect]
     Indication: OTITIS MEDIA
     Dates: start: 20040703, end: 20040708

REACTIONS (6)
  - HEADACHE [None]
  - MALAISE [None]
  - MUSCULOSKELETAL STIFFNESS [None]
  - PETECHIAE [None]
  - PLATELET COUNT ABNORMAL [None]
  - PYREXIA [None]
